FAERS Safety Report 17058750 (Version 1)
Quarter: 2019Q4

REPORT INFORMATION
  Report Type: Spontaneous
  Country: SE (occurrence: SE)
  Receive Date: 20191121
  Receipt Date: 20191121
  Transmission Date: 20200122
  Serious: Yes (Hospitalization)
  Sender: FDA-Public Use
  Company Number: SE-MYLANLABS-2019M1110509

PATIENT
  Age: 16 Year
  Sex: Female

DRUGS (1)
  1. PROMETHAZINE [Suspect]
     Active Substance: PROMETHAZINE HYDROCHLORIDE
     Indication: PRODUCT USED FOR UNKNOWN INDICATION
     Dosage: 30-40 TABLETTER A 5 MG
     Route: 048
     Dates: start: 20190523, end: 20190523

REACTIONS (7)
  - Intentional overdose [Unknown]
  - Dysarthria [Unknown]
  - Intentional self-injury [Unknown]
  - Agitation [Unknown]
  - Heart rate increased [Unknown]
  - Anxiety [Unknown]
  - Muscle twitching [Unknown]

NARRATIVE: CASE EVENT DATE: 20190523
